FAERS Safety Report 5476091-6 (Version None)
Quarter: 2007Q4

REPORT INFORMATION
  Report Type: 
  Country: None (occurrence: None)
  Receive Date: 20071003
  Receipt Date: 20070924
  Transmission Date: 20080405
  Serious: Yes (Hospitalization)
  Sender: FDA-Public Use
  Company Number: US-SHR-US-2007-035913

PATIENT
  Sex: Female

DRUGS (1)
  1. BETASERON [Suspect]
     Dosage: 8 MIU, EVERY 2D @HS
     Route: 058
     Dates: start: 19950612

REACTIONS (3)
  - FALL [None]
  - HIP FRACTURE [None]
  - PAIN IN EXTREMITY [None]
